FAERS Safety Report 8788098 (Version 1)
Quarter: 2012Q4

REPORT INFORMATION
  Report Type: 
  Country: US (occurrence: US)
  Receive Date: 20120914
  Receipt Date: 20120914
  Transmission Date: 20130627
  Serious: Yes (Death)
  Sender: FDA-Public Use
  Company Number: US-ROCHE-1123015

PATIENT
  Sex: Male

DRUGS (18)
  1. AVASTIN [Suspect]
     Indication: BRAIN NEOPLASM MALIGNANT
     Route: 042
     Dates: start: 20061107
  2. AVASTIN [Suspect]
     Route: 042
     Dates: start: 20061121
  3. AVASTIN [Suspect]
     Route: 042
     Dates: start: 20061206
  4. AVASTIN [Suspect]
     Route: 042
     Dates: start: 20061220
  5. AVASTIN [Suspect]
     Route: 042
     Dates: start: 20070103
  6. AVASTIN [Suspect]
     Route: 042
     Dates: start: 20070117
  7. AVASTIN [Suspect]
     Route: 042
     Dates: start: 20070131
  8. AVASTIN [Suspect]
     Route: 042
     Dates: start: 20070302
  9. AVASTIN [Suspect]
     Route: 042
     Dates: start: 20070404
  10. AVASTIN [Suspect]
     Route: 042
     Dates: start: 20070517
  11. AVASTIN [Suspect]
     Route: 042
     Dates: start: 20070531
  12. AVASTIN [Suspect]
     Route: 042
     Dates: start: 20070621
  13. AVASTIN [Suspect]
     Route: 042
     Dates: start: 20070705
  14. AVASTIN [Suspect]
     Route: 042
     Dates: start: 20070719
  15. AVASTIN [Suspect]
     Route: 042
     Dates: start: 20070816
  16. AVASTIN [Suspect]
     Route: 042
     Dates: start: 20070830
  17. AVASTIN [Suspect]
     Route: 042
     Dates: start: 20070913
  18. AVASTIN [Suspect]
     Route: 042
     Dates: start: 20070927

REACTIONS (1)
  - Death [Fatal]
